FAERS Safety Report 8355606-4 (Version None)
Quarter: 2012Q2

REPORT INFORMATION
  Report Type: 
  Country: None (occurrence: None)
  Receive Date: 20120514
  Receipt Date: 20120501
  Transmission Date: 20120825
  Serious: Yes (Hospitalization)
  Sender: FDA-Public Use
  Company Number: US-BIOGENIDEC-2011BI039310

PATIENT
  Age: 54 Year
  Sex: Female

DRUGS (1)
  1. TYSABRI [Suspect]
     Indication: MULTIPLE SCLEROSIS
     Route: 042
     Dates: start: 20091030

REACTIONS (4)
  - CANDIDIASIS [None]
  - STREPTOCOCCAL INFECTION [None]
  - OESOPHAGEAL CANDIDIASIS [None]
  - BRONCHITIS [None]
